FAERS Safety Report 5884670-7 (Version None)
Quarter: 2008Q3

REPORT INFORMATION
  Report Type: 
  Country: None (occurrence: None)
  Receive Date: 20080911
  Receipt Date: 20080904
  Transmission Date: 20090109
  Serious: Yes (Hospitalization, Other)
  Sender: FDA-Public Use
  Company Number: 2007SP016973

PATIENT
  Age: 25 Year
  Sex: Female
  Weight: 93 kg

DRUGS (1)
  1. TEMODAL [Suspect]
     Indication: ASTROCYTOMA

REACTIONS (3)
  - PATERNAL DRUGS AFFECTING FOETUS [None]
  - PRE-ECLAMPSIA [None]
  - PREGNANCY OF PARTNER [None]
